FAERS Safety Report 16065464 (Version 1)
Quarter: 2019Q1

REPORT INFORMATION
  Report Type: Spontaneous
  Country: AT (occurrence: AT)
  Receive Date: 20190313
  Receipt Date: 20190313
  Transmission Date: 20190418
  Serious: Yes (Other)
  Sender: FDA-Public Use
  Company Number: AT-BEH-2019100110

PATIENT
  Sex: Male

DRUGS (4)
  1. EMTRICITABINE [Interacting]
     Active Substance: EMTRICITABINE
     Indication: PRODUCT USED FOR UNKNOWN INDICATION
     Dosage: UNK
     Route: 065
     Dates: start: 20190119
  2. TENOFOVIR [Interacting]
     Active Substance: TENOFOVIR
     Indication: PRODUCT USED FOR UNKNOWN INDICATION
     Dosage: UNK
     Route: 065
     Dates: start: 20190119
  3. RILPIVIRINE [Interacting]
     Active Substance: RILPIVIRINE
     Indication: PRODUCT USED FOR UNKNOWN INDICATION
     Dosage: UNK
     Route: 065
     Dates: start: 20190119
  4. HUMAN FACTOR VIII (INN) [Suspect]
     Active Substance: ANTIHEMOPHILIC FACTOR HUMAN
     Indication: HAEMOPHILIA
     Dosage: ()
     Route: 065

REACTIONS (2)
  - Haematospermia [Unknown]
  - Blood urine present [Unknown]

NARRATIVE: CASE EVENT DATE: 20190119
